FAERS Safety Report 11687220 (Version 2)
Quarter: 2016Q1

REPORT INFORMATION
  Report Type: Report from Study
  Country: US (occurrence: US)
  Receive Date: 20151030
  Receipt Date: 20160122
  Transmission Date: 20160525
  Serious: Yes (Hospitalization)
  Sender: FDA-Public Use
  Company Number: US-SA-2015SA171580

PATIENT
  Age: 52 Year
  Sex: Female

DRUGS (2)
  1. REPLAGAL [Suspect]
     Active Substance: AGALSIDASE ALFA
     Route: 065
  2. FABRAZYME [Suspect]
     Active Substance: AGALSIDASE BETA
     Indication: FABRY^S DISEASE
     Route: 041
     Dates: start: 20120705

REACTIONS (2)
  - Cerebrovascular accident [Unknown]
  - Alopecia [Recovered/Resolved]
